FAERS Safety Report 9135988 (Version 1)
Quarter: 2013Q1

REPORT INFORMATION
  Report Type: Spontaneous
  Country: PT (occurrence: None)
  Receive Date: 20130226
  Receipt Date: 20130226
  Transmission Date: 20140127
  Serious: Yes (Death, Other)
  Sender: FDA-Public Use
  Company Number: ABR_00837_2013

PATIENT
  Sex: Female
  Weight: 1.4 kg

DRUGS (6)
  1. ERYTHROMYCIN (ERYTHROMYCIN) [Suspect]
     Indication: PRODUCT USED FOR UNKNOWN INDICATION
     Dosage: (DF)
     Route: 064
  2. AMOXICILLIN  (AMOXICILLIN) [Suspect]
     Indication: PRODUCT USED FOR UNKNOWN INDICATION
     Dosage: (DF)
     Route: 064
  3. INDOMETACIN [Suspect]
     Indication: PRODUCT USED FOR UNKNOWN INDICATION
     Dosage: (DF)
     Route: 064
  4. MAGNESIUM [Suspect]
     Indication: PRODUCT USED FOR UNKNOWN INDICATION
     Dosage: (DF)
     Route: 064
  5. STEROIDS NOS [Suspect]
     Indication: PRODUCT USED FOR UNKNOWN INDICATION
     Dosage: (DF)
     Route: 064
  6. ANTIHISTAMINES [Suspect]
     Indication: PRODUCT USED FOR UNKNOWN INDICATION
     Dosage: (DF)
     Route: 064

REACTIONS (16)
  - Central nervous system lesion [None]
  - Cerebral ischaemia [None]
  - Brain hypoxia [None]
  - Maternal drugs affecting foetus [None]
  - Foetal hypokinesia [None]
  - Premature baby [None]
  - Tachycardia foetal [None]
  - Caesarean section [None]
  - Apgar score low [None]
  - Brain stem ischaemia [None]
  - Thalamic infarction [None]
  - Gliosis [None]
  - White matter lesion [None]
  - Craniocerebral injury [None]
  - Periventricular leukomalacia [None]
  - Neonatal respiratory arrest [None]
